FAERS Safety Report 5755307-2 (Version None)
Quarter: 2008Q2

REPORT INFORMATION
  Report Type: 
  Country: None (occurrence: None)
  Receive Date: 20080602
  Receipt Date: 20080528
  Transmission Date: 20081010
  Serious: Yes (Other)
  Sender: FDA-Public Use
  Company Number: DE-BRISTOL-MYERS SQUIBB COMPANY-14208706

PATIENT

DRUGS (1)
  1. REYATAZ [Suspect]

REACTIONS (2)
  - BACK DISORDER [None]
  - OSTEONECROSIS [None]
